FAERS Safety Report 4536359-4 (Version None)
Quarter: 2004Q4

REPORT INFORMATION
  Report Type: 
  Country: None (occurrence: None)
  Receive Date: 20041223
  Receipt Date: 20040819
  Transmission Date: 20050328
  Serious: No
  Sender: FDA-Public Use
  Company Number: US-GLAXOSMITHKLINE-A0522790A

PATIENT
  Age: 78 Year
  Sex: Female

DRUGS (7)
  1. FLONASE [Suspect]
     Dosage: 4SPR PER DAY
     Route: 045
  2. LESCOL [Concomitant]
  3. TIMOLOL MALEATE [Concomitant]
  4. POTASSIUM [Concomitant]
  5. OCUVITE [Concomitant]
  6. MULTIVITAMIN [Concomitant]
  7. COUGH SYRUP [Concomitant]
     Route: 048

REACTIONS (1)
  - DRUG INEFFECTIVE [None]
